FAERS Safety Report 8382601-1 (Version None)
Quarter: 2012Q2

REPORT INFORMATION
  Report Type: 
  Country: None (occurrence: None)
  Receive Date: 20120524
  Receipt Date: 20120514
  Transmission Date: 20120825
  Serious: Yes (Hospitalization, Other)
  Sender: FDA-Public Use
  Company Number: US-JNJFOC-20120411858

PATIENT
  Sex: Female
  Weight: 244 kg

DRUGS (19)
  1. XARELTO [Suspect]
     Indication: THROMBOSIS PROPHYLAXIS
     Route: 048
  2. TYLENOL [Concomitant]
     Route: 048
  3. DOCUSATE [Concomitant]
     Route: 048
  4. LAMICTAL [Concomitant]
     Route: 048
  5. XANAX [Concomitant]
     Route: 048
  6. QUETIAPINE [Concomitant]
  7. COUMADIN [Concomitant]
     Dosage: ONCE A DAY ADJUSTED BASED ON INR RESPONSE
  8. ZOFRAN [Concomitant]
     Route: 042
  9. OXYCONTIN [Concomitant]
  10. XARELTO [Suspect]
     Indication: KNEE ARTHROPLASTY
     Route: 048
  11. PROZAC [Concomitant]
     Route: 048
  12. CYMBALTA [Concomitant]
  13. PERCOCET [Concomitant]
  14. FLUOXETINE [Concomitant]
  15. CYMBALTA [Concomitant]
     Route: 048
  16. LOVENOX [Concomitant]
     Route: 058
  17. PROTONIX [Concomitant]
     Route: 048
  18. SALINE NOSE SPRAY [Concomitant]
     Route: 045
  19. COUMADIN [Concomitant]
     Dosage: FOR ONE DOSE NOW

REACTIONS (1)
  - PULMONARY EMBOLISM [None]
